FAERS Safety Report 22373190 (Version 1)
Quarter: 2023Q2

REPORT INFORMATION
  Report Type: Spontaneous
  Country: US (occurrence: US)
  Receive Date: 20230526
  Receipt Date: 20230526
  Transmission Date: 20230722
  Serious: Yes (Hospitalization, Other)
  Sender: FDA-Public Use
  Company Number: US-NESTLEHEALTHSCIENCE-2022000079

PATIENT

DRUGS (6)
  1. ZENPEP [Suspect]
     Active Substance: PANCRELIPASE AMYLASE\PANCRELIPASE LIPASE\PANCRELIPASE PROTEASE
     Indication: Pancreatic failure
     Dosage: 2 CAPSULES WITH EVERY MEAL
     Route: 048
     Dates: start: 2014
  2. ZENPEP [Suspect]
     Active Substance: PANCRELIPASE AMYLASE\PANCRELIPASE LIPASE\PANCRELIPASE PROTEASE
     Dosage: 6 CAPSULES WITH EVERY MEAL
     Route: 048
  3. LANTUS [Concomitant]
     Active Substance: INSULIN GLARGINE
     Indication: Diabetes mellitus
  4. METHADONE [Concomitant]
     Active Substance: METHADONE HYDROCHLORIDE
     Indication: Pain in extremity
  5. MORPHINE [Concomitant]
     Active Substance: MORPHINE
     Indication: Pain in extremity
     Dosage: 7.5 MG, 3X/DAY
  6. PERCOCET [Concomitant]
     Active Substance: ACETAMINOPHEN\OXYCODONE HYDROCHLORIDE
     Indication: Pain
     Dosage: 10 MG, 3X/DAY

REACTIONS (17)
  - Pneumonia [Recovered/Resolved]
  - Sepsis [Recovered/Resolved]
  - Haematochezia [Unknown]
  - Impaired gastric emptying [Unknown]
  - Loss of consciousness [Unknown]
  - Decreased appetite [Not Recovered/Not Resolved]
  - Oxygen saturation decreased [Unknown]
  - Hypotension [Unknown]
  - Incontinence [Unknown]
  - Malaise [Unknown]
  - Urinary tract infection bacterial [Unknown]
  - Abdominal pain upper [Unknown]
  - Steatorrhoea [Unknown]
  - Breast pain [Unknown]
  - Dyspnoea [Unknown]
  - Diarrhoea [Unknown]
  - Vomiting [Unknown]

NARRATIVE: CASE EVENT DATE: 20200101
